FAERS Safety Report 6189064-5 (Version None)
Quarter: 2009Q2

REPORT INFORMATION
  Report Type: 
  Country: None (occurrence: None)
  Receive Date: 20090513
  Receipt Date: 20090508
  Transmission Date: 20091009
  Serious: Yes (Hospitalization)
  Sender: FDA-Public Use
  Company Number: PT-ABBOTT-09P-130-0562245-00

PATIENT
  Sex: Male

DRUGS (2)
  1. SEVOFLURANE [Suspect]
     Indication: ANAESTHESIA
     Route: 055
     Dates: start: 20090128, end: 20090128
  2. SEVOFLURANE [Suspect]
     Indication: ADENOTONSILLECTOMY

REACTIONS (1)
  - THERMAL BURN [None]
